FAERS Safety Report 5976649-1 (Version None)
Quarter: 2008Q4

REPORT INFORMATION
  Report Type: 
  Country: None (occurrence: None)
  Receive Date: 20081201
  Receipt Date: 20081201
  Transmission Date: 20090506
  Serious: Yes (Other)
  Sender: FDA-Public Use
  Company Number: None

PATIENT
  Sex: Female
  Weight: 49.4421 kg

DRUGS (1)
  1. AZITHROMYCIN [Suspect]
     Indication: SEXUALLY TRANSMITTED DISEASE
     Dosage: 2 1 ORAL
     Route: 048
     Dates: start: 20081103

REACTIONS (1)
  - SWOLLEN TONGUE [None]
